FAERS Safety Report 12527072 (Version 1)
Quarter: 2016Q2

REPORT INFORMATION
  Report Type: Spontaneous
  Country: US (occurrence: None)
  Receive Date: 20160630
  Receipt Date: 20160630
  Transmission Date: 20160815
  Serious: No
  Sender: FDA-Public Use
  Company Number: None

PATIENT
  Age: 46 Year
  Sex: Female

DRUGS (5)
  1. CIMZIA [Suspect]
     Active Substance: CERTOLIZUMAB PEGOL
     Indication: PSORIATIC ARTHROPATHY
     Route: 058
     Dates: start: 20151028
  2. METHYLPRED [Concomitant]
     Active Substance: METHYLPREDNISOLONE
  3. ZOLPIDEM [Concomitant]
     Active Substance: ZOLPIDEM\ZOLPIDEM TARTRATE
  4. OMEPRAZOLE. [Concomitant]
     Active Substance: OMEPRAZOLE
  5. TAMOXIFEN [Concomitant]
     Active Substance: TAMOXIFEN

REACTIONS (2)
  - Therapy change [None]
  - Condition aggravated [None]

NARRATIVE: CASE EVENT DATE: 201606
